FAERS Safety Report 4926668-9 (Version None)
Quarter: 2006Q1

REPORT INFORMATION
  Report Type: 
  Country: None (occurrence: None)
  Receive Date: 20060228
  Receipt Date: 20050520
  Transmission Date: 20060701
  Serious: No
  Sender: FDA-Public Use
  Company Number: US-GLAXOSMITHKLINE-A0559587A

PATIENT
  Age: 33 Year
  Sex: Male

DRUGS (2)
  1. LAMICTAL [Suspect]
     Dosage: 50MG PER DAY
     Route: 048
     Dates: start: 20050401, end: 20050520
  2. KLONOPIN [Concomitant]

REACTIONS (2)
  - PRURITUS [None]
  - RASH [None]
